FAERS Safety Report 21408844 (Version 3)
Quarter: 2023Q2

REPORT INFORMATION
  Report Type: Spontaneous
  Country: ES (occurrence: ES)
  Receive Date: 20221004
  Receipt Date: 20230410
  Transmission Date: 20230722
  Serious: Yes (Other)
  Sender: FDA-Public Use
  Company Number: ES-SUN PHARMACEUTICAL INDUSTRIES LTD-2022RR-345425

PATIENT
  Age: 5 Decade
  Sex: Female

DRUGS (16)
  1. MORPHINE SULFATE [Suspect]
     Active Substance: MORPHINE SULFATE
     Indication: Product used for unknown indication
     Dosage: AS NEEDED
     Route: 065
  2. TRAMADOL HYDROCHLORIDE [Suspect]
     Active Substance: TRAMADOL HYDROCHLORIDE
     Indication: Product used for unknown indication
     Dosage: AS NEEDED
     Route: 065
  3. TOPIRAMATE [Suspect]
     Active Substance: TOPIRAMATE
     Indication: Product used for unknown indication
     Dosage: 50 MILLIGRAM
     Route: 065
  4. CLORAZEPATE DIPOTASSIUM [Suspect]
     Active Substance: CLORAZEPATE DIPOTASSIUM
     Indication: Product used for unknown indication
     Dosage: 100 MILLIGRAM
     Route: 065
  5. CLORAZEPATE DIPOTASSIUM [Suspect]
     Active Substance: CLORAZEPATE DIPOTASSIUM
     Dosage: 100 MG, 1X/DAY
     Route: 065
  6. PALIPERIDONE [Suspect]
     Active Substance: PALIPERIDONE
     Indication: Product used for unknown indication
     Dosage: 9 UNK, DAILY
     Route: 065
  7. GABAPENTIN [Suspect]
     Active Substance: GABAPENTIN
     Indication: Product used for unknown indication
     Dosage: 2400 MILLIGRAM, DAILY
     Route: 065
  8. LORAZEPAM [Suspect]
     Active Substance: LORAZEPAM
     Indication: Product used for unknown indication
     Dosage: 30 MILLIGRAM
     Route: 065
  9. LORAZEPAM [Suspect]
     Active Substance: LORAZEPAM
     Dosage: 30 MG
     Route: 065
  10. LORAZEPAM [Suspect]
     Active Substance: LORAZEPAM
     Dosage: 9 MG, 1X/DAY
     Route: 065
  11. QUETIAPINE [Suspect]
     Active Substance: QUETIAPINE
     Indication: Product used for unknown indication
     Dosage: 500 MILLIGRAM
     Route: 065
  12. VENLAFAXINE [Suspect]
     Active Substance: VENLAFAXINE HYDROCHLORIDE
     Indication: Product used for unknown indication
     Dosage: 300 MILLIGRAM, DAILY
     Route: 065
  13. QUETIAPINE [Concomitant]
     Active Substance: QUETIAPINE
     Indication: Product used for unknown indication
     Dosage: 500 MG, 1X/DAY
     Route: 065
  14. QUETIAPINE [Concomitant]
     Active Substance: QUETIAPINE
     Dosage: 500 MG, 1X/DAY
     Route: 065
  15. VENLAFAXINE HYDROCHLORIDE [Concomitant]
     Active Substance: VENLAFAXINE HYDROCHLORIDE
     Indication: Product used for unknown indication
     Dosage: 300 MG, 1X/DAY
     Route: 065
  16. VENLAFAXINE HYDROCHLORIDE [Concomitant]
     Active Substance: VENLAFAXINE HYDROCHLORIDE
     Dosage: 300 MG, 1X/DAY
     Route: 065

REACTIONS (11)
  - Catatonia [Unknown]
  - Affect lability [Unknown]
  - Urinary retention [Unknown]
  - Regressive behaviour [Unknown]
  - Delusion [Unknown]
  - Somatic symptom disorder [Unknown]
  - Anxiety [Unknown]
  - Drug dependence [Unknown]
  - Drug ineffective [Unknown]
  - Drug ineffective [Unknown]
  - Drug abuse [Unknown]
